FAERS Safety Report 4998455-7 (Version None)
Quarter: 2006Q2

REPORT INFORMATION
  Report Type: 
  Country: None (occurrence: None)
  Receive Date: 20060510
  Receipt Date: 20060503
  Transmission Date: 20061013
  Serious: Yes (Hospitalization)
  Sender: FDA-Public Use
  Company Number: FR-GLAXOSMITHKLINE-B0422364A

PATIENT
  Age: 46 Year
  Sex: Female
  Weight: 70 kg

DRUGS (8)
  1. ZINNAT [Suspect]
     Indication: BACTERIAL INFECTION
     Dosage: 2UNIT PER DAY
     Route: 048
     Dates: start: 20040901, end: 20040901
  2. SEREVENT [Concomitant]
  3. PONSTYL [Concomitant]
     Indication: BACK PAIN
     Route: 048
  4. PULMICORT [Concomitant]
  5. NASALIDE [Concomitant]
  6. ZYRTEC [Concomitant]
  7. DOLIPRANE [Concomitant]
  8. PROPOFOL [Concomitant]

REACTIONS (7)
  - ANAPHYLACTIC SHOCK [None]
  - DIARRHOEA [None]
  - HYPERHIDROSIS [None]
  - HYPOTENSION [None]
  - MALAISE [None]
  - NAUSEA [None]
  - PRURITUS [None]
